FAERS Safety Report 5492680-7 (Version None)
Quarter: 2007Q4

REPORT INFORMATION
  Report Type: 
  Country: None (occurrence: None)
  Receive Date: 20071022
  Receipt Date: 20071011
  Transmission Date: 20080405
  Serious: Yes (Hospitalization)
  Sender: FDA-Public Use
  Company Number: US-BAXTER-2007BH008107

PATIENT
  Sex: Male
  Weight: 117 kg

DRUGS (6)
  1. GAMMAGARD S/D [Suspect]
     Indication: COMBINED IMMUNODEFICIENCY
     Route: 042
     Dates: start: 20070905, end: 20070928
  2. TYLENOL (CAPLET) [Concomitant]
     Indication: PREMEDICATION
     Route: 065
  3. BENADRYL [Concomitant]
     Indication: PREMEDICATION
     Route: 065
  4. DEPAKOTE [Concomitant]
     Indication: DRUG USE FOR UNKNOWN INDICATION
     Route: 048
  5. PAXIL [Concomitant]
     Indication: DRUG USE FOR UNKNOWN INDICATION
     Route: 048
  6. INSULIN [Concomitant]
     Indication: DRUG USE FOR UNKNOWN INDICATION
     Dosage: DOSE UNIT:UNKNOWN
     Route: 058

REACTIONS (3)
  - DYSPHAGIA [None]
  - ENLARGED UVULA [None]
  - RASH [None]
